FAERS Safety Report 16378242 (Version 1)
Quarter: 2019Q2

REPORT INFORMATION
  Report Type: Spontaneous
  Country: GB (occurrence: GB)
  Receive Date: 20190531
  Receipt Date: 20190531
  Transmission Date: 20190711
  Serious: Yes (Other)
  Sender: FDA-Public Use
  Company Number: GB-ABBVIE-19K-167-2804061-00

PATIENT
  Age: 71 Year
  Sex: Male
  Weight: 111.4 kg

DRUGS (1)
  1. HUMIRA [Suspect]
     Active Substance: ADALIMUMAB
     Indication: CROHN^S DISEASE
     Route: 058
     Dates: start: 20161001

REACTIONS (1)
  - Parkinsonism [Recovered/Resolved with Sequelae]

NARRATIVE: CASE EVENT DATE: 20181212
